FAERS Safety Report 8052049-8 (Version None)
Quarter: 2012Q1

REPORT INFORMATION
  Report Type: 
  Country: None (occurrence: None)
  Receive Date: 20120118
  Receipt Date: 20120106
  Transmission Date: 20120608
  Serious: Yes (Hospitalization, Other)
  Sender: FDA-Public Use
  Company Number: US-ELI_LILLY_AND_COMPANY-US201201002342

PATIENT
  Age: 60 Year
  Sex: Female

DRUGS (5)
  1. NEXIUM [Concomitant]
  2. FORTEO [Suspect]
     Indication: OSTEOPOROSIS
     Dosage: 20 UG, QD
     Route: 065
     Dates: start: 20101101
  3. CYMBALTA [Concomitant]
     Indication: FIBROMYALGIA
     Dosage: 120 MG, QD
     Dates: start: 20070101
  4. HYDROCHLOROTHIAZIDE [Concomitant]
     Indication: HYPERTENSION
  5. METOPROLOL TARTRATE [Concomitant]
     Indication: BLOOD PRESSURE

REACTIONS (2)
  - FALL [None]
  - HIP FRACTURE [None]
